FAERS Safety Report 7788772-X (Version None)
Quarter: 2011Q3

REPORT INFORMATION
  Report Type: 
  Country: None (occurrence: None)
  Receive Date: 20110928
  Receipt Date: 20110909
  Transmission Date: 20111222
  Serious: Yes (Death, Hospitalization)
  Sender: FDA-Public Use
  Company Number: UTC-010119

PATIENT
  Age: 35 Year
  Sex: Female
  Weight: 43.1 kg

DRUGS (3)
  1. REVATIO [Concomitant]
  2. REMODULIN [Suspect]
     Indication: PULMONARY ARTERIAL HYPERTENSION
     Dosage: 56.16 UG/KG (0.039 UG/KG, 1 IN MIN), SUBCUTANEOUS
     Route: 058
     Dates: start: 20101019
  3. COUMADIN [Concomitant]

REACTIONS (1)
  - HOSPITALISATION [None]
